FAERS Safety Report 5020434-4 (Version None)
Quarter: 2006Q2

REPORT INFORMATION
  Report Type: 
  Country: None (occurrence: None)
  Receive Date: 20060607
  Receipt Date: 20060526
  Transmission Date: 20061013
  Serious: Yes (Other)
  Sender: FDA-Public Use
  Company Number: PHBS2006ZA08017

PATIENT
  Sex: Male

DRUGS (1)
  1. DIOVAN [Suspect]
     Dosage: 160 MG/DAY
     Route: 048

REACTIONS (3)
  - ANGIONEUROTIC OEDEMA [None]
  - BRONCHOSPASM [None]
  - RASH [None]
